FAERS Safety Report 6835718-4 (Version None)
Quarter: 2010Q3

REPORT INFORMATION
  Report Type: 
  Country: None (occurrence: None)
  Receive Date: 20100713
  Receipt Date: 20100702
  Transmission Date: 20110219
  Serious: Yes (Hospitalization, Other)
  Sender: FDA-Public Use
  Company Number: FR-PFIZER INC-2009189701

PATIENT
  Age: 82 Year
  Sex: Female

DRUGS (3)
  1. ALPRAZOLAM [Suspect]
     Dosage: UNK
     Route: 048
  2. ALDACTAZINE [Interacting]
     Dosage: 15/25 MG PER DAY
     Route: 048
  3. LUDIOMIL [Concomitant]
     Dosage: 25 MG, UNK

REACTIONS (2)
  - FALL [None]
  - WRIST FRACTURE [None]
